FAERS Safety Report 20835927 (Version 1)
Quarter: 2022Q2

REPORT INFORMATION
  Report Type: 
  Country: None (occurrence: None)
  Receive Date: 20220516
  Receipt Date: 20220516
  Transmission Date: 20220720
  Serious: No
  Sender: FDA-Public Use
  Company Number: MX-ROCHE-3097527

PATIENT
  Age: 25 Year

DRUGS (1)
  1. OCREVUS [Suspect]
     Active Substance: OCRELIZUMAB
     Dates: start: 20190802

REACTIONS (2)
  - Discomfort [None]
  - COVID-19 [None]

NARRATIVE: CASE EVENT DATE: 20211201
